FAERS Safety Report 17171370 (Version 1)
Quarter: 2019Q4

REPORT INFORMATION
  Report Type: Spontaneous
  Country: US (occurrence: US)
  Receive Date: 20191218
  Receipt Date: 20191218
  Transmission Date: 20200122
  Serious: No
  Sender: FDA-Public Use
  Company Number: US-SUPERNUS PHARMACEUTICALS, INC.-2019SUP00098

PATIENT
  Sex: Female
  Weight: 125.17 kg

DRUGS (18)
  1. TROKENDI XR [Suspect]
     Active Substance: TOPIRAMATE
     Indication: MIGRAINE
     Dosage: 50 MG, 1X/DAY FOR 2 TO 4 WEEKS
     Route: 048
     Dates: start: 2019, end: 2019
  2. CAMBIA [Suspect]
     Active Substance: DICLOFENAC POTASSIUM
     Indication: MIGRAINE
     Dosage: UNK, AS NEEDED
  3. TIZANIDINE. [Suspect]
     Active Substance: TIZANIDINE
     Indication: MIGRAINE
     Dosage: UNK, AS NEEDED UP TO TWICE A WEEK
  4. ATENOLOL. [Concomitant]
     Active Substance: ATENOLOL
  5. BOTOX [Concomitant]
     Active Substance: ONABOTULINUMTOXINA
  6. UNSPECIFIED MEDICATION FOR VOMITING [Concomitant]
  7. METFORMIN ER [Concomitant]
     Active Substance: METFORMIN HYDROCHLORIDE
  8. MECLIZINE [Concomitant]
     Active Substance: MECLIZINE HYDROCHLORIDE
     Dosage: 45 MINUTES BEFORE TAKING A SHOWER
  9. ^TOMIT^ [Suspect]
     Active Substance: METOCLOPRAMIDE HYDROCHLORIDE
     Indication: MIGRAINE
     Dosage: UNK, AS NEEDED
     Route: 045
  10. MULTIVITAMIN [Concomitant]
     Active Substance: VITAMINS
  11. TROKENDI XR [Suspect]
     Active Substance: TOPIRAMATE
     Indication: MIGRAINE
     Dosage: UNK
     Route: 048
     Dates: start: 2016
  12. TROKENDI XR [Suspect]
     Active Substance: TOPIRAMATE
     Indication: MIGRAINE
     Dosage: 100 MG, 1X/DAY FOR OVER A MONTH
     Route: 048
     Dates: start: 2019, end: 2019
  13. TROKENDI XR [Suspect]
     Active Substance: TOPIRAMATE
     Dosage: 100 MG, 1X/DAY
     Route: 048
     Dates: start: 20190406
  14. TROKENDI XR [Suspect]
     Active Substance: TOPIRAMATE
     Indication: MIGRAINE
     Dosage: 200 MG, 1X/DAY
     Route: 048
     Dates: start: 2019, end: 20190405
  15. MAGNESIUM [Concomitant]
     Active Substance: MAGNESIUM
  16. TROKENDI XR [Suspect]
     Active Substance: TOPIRAMATE
     Indication: MIGRAINE
     Dosage: 25 MG, 1X/DAY
     Route: 048
     Dates: start: 201902, end: 2019
  17. AJOVY [Suspect]
     Active Substance: FREMANEZUMAB-VFRM
     Indication: MIGRAINE
  18. MULBERRY LEAF EXTRACT [Concomitant]

REACTIONS (18)
  - Drug ineffective [Not Recovered/Not Resolved]
  - Movement disorder [Recovered/Resolved]
  - Disturbance in attention [Unknown]
  - Breast discharge [Not Recovered/Not Resolved]
  - Headache [Unknown]
  - Influenza like illness [Unknown]
  - Panic attack [Recovered/Resolved]
  - Feeling abnormal [Not Recovered/Not Resolved]
  - Breath holding [Unknown]
  - Hypoaesthesia [Unknown]
  - Chest pain [Recovered/Resolved]
  - Dry eye [Not Recovered/Not Resolved]
  - Menstrual disorder [Unknown]
  - Palpitations [Unknown]
  - Sensation of blood flow [Recovered/Resolved]
  - Blood pressure increased [Recovered/Resolved]
  - Urinary incontinence [Unknown]
  - Somnolence [Unknown]

NARRATIVE: CASE EVENT DATE: 2019
